FAERS Safety Report 5665135-4 (Version None)
Quarter: 2008Q1

REPORT INFORMATION
  Report Type: 
  Country: None (occurrence: None)
  Receive Date: 20080314
  Receipt Date: 20080307
  Transmission Date: 20080703
  Serious: Yes (Hospitalization)
  Sender: FDA-Public Use
  Company Number: JP-MERCK-0711USA00786

PATIENT
  Age: 59 Year
  Sex: Female

DRUGS (6)
  1. FOSAMAX [Suspect]
     Indication: OSTEOPOROSIS
     Route: 048
     Dates: start: 20061005, end: 20070418
  2. RHEUMATREX [Concomitant]
     Indication: RHEUMATOID ARTHRITIS
     Route: 048
     Dates: start: 20060905
  3. VOLTAREN [Suspect]
     Indication: RHEUMATOID ARTHRITIS
     Route: 054
     Dates: start: 20060905, end: 20070414
  4. PREDNISOLONE [Concomitant]
     Indication: RHEUMATOID ARTHRITIS
     Route: 048
     Dates: start: 20060905
  5. TAKEPRON [Concomitant]
     Indication: GASTROINTESTINAL DISORDER
     Route: 048
     Dates: start: 20060905
  6. RHEUMATREX [Concomitant]
     Route: 048
     Dates: start: 20060101

REACTIONS (1)
  - NEPHROTIC SYNDROME [None]
